FAERS Safety Report 9043883 (Version 1)
Quarter: 2013Q1

REPORT INFORMATION
  Report Type: Report from Study
  Country: US (occurrence: US)
  Receive Date: 20130130
  Receipt Date: 20130130
  Transmission Date: 20140127
  Serious: No
  Sender: FDA-Public Use
  Company Number: US-ABBOTT-12P-163-0946879-00

PATIENT
  Age: 16 Year
  Sex: Female

DRUGS (8)
  1. HUMIRA 40 MG/0.8 ML PEN [Suspect]
     Indication: JUVENILE IDIOPATHIC ARTHRITIS
     Dates: start: 20120502
  2. METHOTREXATE [Concomitant]
     Indication: PRODUCT USED FOR UNKNOWN INDICATION
     Dosage: 9 TABLETS WEEKLY
  3. METAXALONE [Concomitant]
     Indication: MYALGIA
     Dosage: AT NIGHT
  4. CELEXA [Concomitant]
     Indication: DEPRESSION
     Dosage: GENERIC 30MG DAILY
  5. OMEPRAZOLE [Concomitant]
     Indication: GASTROOESOPHAGEAL REFLUX DISEASE
     Dosage: 40MG DAILY
  6. FOLIC ACID [Concomitant]
     Indication: STOMATITIS
     Dosage: 1MG DAILY
  7. PROAIR [Concomitant]
     Indication: ASTHMA
  8. TORADOL [Concomitant]
     Indication: MUSCULOSKELETAL PAIN

REACTIONS (4)
  - Injection site pain [Not Recovered/Not Resolved]
  - Injection site reaction [Not Recovered/Not Resolved]
  - Injection site pain [Not Recovered/Not Resolved]
  - Headache [Not Recovered/Not Resolved]
